FAERS Safety Report 23301091 (Version 1)
Quarter: 2023Q4

REPORT INFORMATION
  Report Type: Report from Study
  Country: US (occurrence: US)
  Receive Date: 20231215
  Receipt Date: 20231215
  Transmission Date: 20240109
  Serious: Yes (Hospitalization)
  Sender: FDA-Public Use
  Company Number: US-TAKEDA-US201928011

PATIENT
  Age: 63 Year
  Sex: Female
  Weight: 54 kg

DRUGS (11)
  1. TEDUGLUTIDE [Suspect]
     Active Substance: TEDUGLUTIDE
     Indication: Short-bowel syndrome
     Dosage: 3.0 MILLIGRAM (TED DAILY DOSE MG KG 0.05, TED DOSES PER WEEK 7)
     Route: 065
     Dates: start: 20181211
  2. TEDUGLUTIDE [Suspect]
     Active Substance: TEDUGLUTIDE
     Indication: Short-bowel syndrome
     Dosage: 3.0 MILLIGRAM (TED DAILY DOSE MG KG 0.05, TED DOSES PER WEEK 7)
     Route: 065
     Dates: start: 20181211
  3. TEDUGLUTIDE [Suspect]
     Active Substance: TEDUGLUTIDE
     Indication: Short-bowel syndrome
     Dosage: 3.0 MILLIGRAM (TED DAILY DOSE MG KG 0.05, TED DOSES PER WEEK 7)
     Route: 065
     Dates: start: 20181211
  4. TEDUGLUTIDE [Suspect]
     Active Substance: TEDUGLUTIDE
     Indication: Short-bowel syndrome
     Dosage: 3.0 MILLIGRAM (TED DAILY DOSE MG KG 0.05, TED DOSES PER WEEK 7)
     Route: 065
     Dates: start: 20181211
  5. ZINC SULFATE [Concomitant]
     Active Substance: ZINC SULFATE
     Indication: Zinc deficiency
     Dosage: 220.00 MILLIGRAM, QD
     Route: 048
     Dates: start: 20190418
  6. OXYCODONE [Concomitant]
     Active Substance: OXYCODONE
     Indication: Pain
     Dosage: 10.00 MILLIGRAM
     Route: 048
     Dates: start: 20190417
  7. LINEZOLID [Concomitant]
     Active Substance: LINEZOLID
     Indication: Infection prophylaxis
     Route: 065
  8. POTASSIUM CHLORIDE [Concomitant]
     Active Substance: POTASSIUM CHLORIDE
     Indication: Electrolyte imbalance
     Route: 065
  9. LIDOCAINE [Concomitant]
     Active Substance: LIDOCAINE
     Indication: Pain
     Dosage: UNK, SINGLE
     Route: 058
     Dates: start: 20190406, end: 20190406
  10. TRIAMCINOLONE [Concomitant]
     Active Substance: TRIAMCINOLONE
     Indication: Pain
     Dosage: UNK, SINGLE
     Route: 058
     Dates: start: 20190406, end: 20190406
  11. TRIAMCINOLONE [Concomitant]
     Active Substance: TRIAMCINOLONE
     Indication: Swelling

REACTIONS (2)
  - Nerve compression [Recovered/Resolved]
  - Diarrhoea [Recovered/Resolved]

NARRATIVE: CASE EVENT DATE: 20190404
